FAERS Safety Report 15895568 (Version 2)
Quarter: 2019Q1

REPORT INFORMATION
  Report Type: Spontaneous
  Country: US (occurrence: US)
  Receive Date: 20190131
  Receipt Date: 20190214
  Transmission Date: 20190417
  Serious: No
  Sender: FDA-Public Use
  Company Number: US-TEVA-2019-US-999957

PATIENT
  Age: 80 Year
  Sex: Female

DRUGS (3)
  1. CLOTRIMAZOLE CREAM [Suspect]
     Active Substance: CLOTRIMAZOLE
     Indication: PRURITUS
  2. CLOTRIMAZOLE CREAM [Suspect]
     Active Substance: CLOTRIMAZOLE
     Indication: ANTIFUNGAL TREATMENT
     Dosage: AS NEEDED
     Route: 065
     Dates: start: 20190113
  3. CLOTRIMAZOLE CREAM [Suspect]
     Active Substance: CLOTRIMAZOLE
     Indication: IRRITABILITY

REACTIONS (2)
  - Pollakiuria [Unknown]
  - Drug ineffective [Unknown]

NARRATIVE: CASE EVENT DATE: 20190113
